FAERS Safety Report 4750616-8 (Version None)
Quarter: 2005Q3

REPORT INFORMATION
  Report Type: 
  Country: None (occurrence: None)
  Receive Date: 20050823
  Receipt Date: 20050405
  Transmission Date: 20060218
  Serious: Yes (Life-Threatening, Hospitalization)
  Sender: FDA-Public Use
  Company Number: DE-ROCHE-400848

PATIENT
  Age: 28 Year
  Sex: Male
  Weight: 64 kg

DRUGS (7)
  1. PEG-INTERFERON A-2A (RO 25-8310) [Suspect]
     Route: 058
     Dates: start: 20040713, end: 20041208
  2. BLINDED ADEFOVIR DIPOVIXIL [Suspect]
     Route: 048
     Dates: start: 20040713, end: 20041215
  3. ISONIAZID [Concomitant]
     Indication: TUBERCULOSIS
     Dates: start: 20050105, end: 20050330
  4. MYAMBUTOL [Concomitant]
     Indication: TUBERCULOSIS
     Dates: start: 20041221, end: 20050405
  5. MYCOBUTIN [Concomitant]
     Indication: TUBERCULOSIS
     Dates: start: 20041221, end: 20050405
  6. PYRAFAT [Concomitant]
     Indication: TUBERCULOSIS
     Dates: start: 20050208, end: 20050405
  7. DECORTIN [Concomitant]
     Indication: TUBERCULOSIS
     Dosage: INITIALLY 50 MG DAILY, TAILORED TO 10 MG DAILY AND INCREASED ON 05 APRIL 2005 TO 50 MG DAILY.

REACTIONS (6)
  - ASCITES [None]
  - GENERAL PHYSICAL HEALTH DETERIORATION [None]
  - HEPATITIS [None]
  - HEPATOTOXICITY [None]
  - PLEURAL EFFUSION [None]
  - TUBERCULOSIS [None]
